FAERS Safety Report 6871822-2 (Version None)
Quarter: 2010Q3

REPORT INFORMATION
  Report Type: 
  Country: None (occurrence: None)
  Receive Date: 20100723
  Receipt Date: 20100719
  Transmission Date: 20110219
  Serious: Yes (Other)
  Sender: FDA-Public Use
  Company Number: B0666652A

PATIENT

DRUGS (1)
  1. BUPROPION [Suspect]

REACTIONS (4)
  - CONDUCTION DISORDER [None]
  - DRUG EXPOSURE DURING PREGNANCY [None]
  - FOETAL ARRHYTHMIA [None]
  - SUPRAVENTRICULAR EXTRASYSTOLES [None]
